FAERS Safety Report 15664431 (Version 1)
Quarter: 2018Q4

REPORT INFORMATION
  Report Type: Spontaneous
  Country: US (occurrence: US)
  Receive Date: 20181127
  Receipt Date: 20181127
  Transmission Date: 20190205
  Serious: No
  Sender: FDA-Public Use
  Company Number: None

PATIENT
  Age: 42 Year
  Sex: Female
  Weight: 81 kg

DRUGS (1)
  1. WALGREENS COLD SORE TREATMENT [Suspect]
     Active Substance: BENZALKONIUM CHLORIDE\CAMPHOR (SYNTHETIC)
     Indication: ORAL HERPES
     Dosage: ?          QUANTITY:1 PUMP;OTHER FREQUENCY:1-3 TIMES DAILY;?
     Route: 061
     Dates: start: 20181126, end: 20181127

REACTIONS (3)
  - Product odour abnormal [None]
  - Condition aggravated [None]
  - Product substitution issue [None]

NARRATIVE: CASE EVENT DATE: 20181126
